FAERS Safety Report 17744909 (Version 1)
Quarter: 2020Q2

REPORT INFORMATION
  Report Type: Spontaneous
  Country: US (occurrence: US)
  Receive Date: 20200505
  Receipt Date: 20200505
  Transmission Date: 20200714
  Serious: No
  Sender: FDA-Public Use
  Company Number: US-APOTEX-2020AP010176

PATIENT
  Sex: Female
  Weight: 88 kg

DRUGS (1)
  1. NICOTINE TRANSDERMAL SYSTEM [Suspect]
     Active Substance: NICOTINE
     Indication: SMOKING CESSATION THERAPY
     Dosage: 1 DF, QD (1 PATCH ONCE A DAY TO SKIN)
     Route: 062
     Dates: start: 2018

REACTIONS (7)
  - Application site pain [Recovered/Resolved]
  - Application site erythema [Recovered/Resolved]
  - Skin laceration [Recovered/Resolved]
  - Application site pruritus [Recovered/Resolved]
  - Treatment noncompliance [Unknown]
  - Hypersensitivity [Recovered/Resolved]
  - Application site irritation [Recovered/Resolved]

NARRATIVE: CASE EVENT DATE: 2018
